FAERS Safety Report 9320819 (Version 2)
Quarter: 2013Q2

REPORT INFORMATION
  Report Type: Spontaneous
  Country: GB (occurrence: None)
  Receive Date: 20130528
  Receipt Date: 20130531
  Transmission Date: 20140414
  Serious: Yes (Other)
  Sender: FDA-Public Use
  Company Number: AUR-APL-2013-04245

PATIENT
  Age: 42 Year
  Sex: Female

DRUGS (6)
  1. TERBINAFINE [Suspect]
     Indication: PRODUCT USED FOR UNKNOWN INDICATION
  2. CLOZARIL [Suspect]
     Indication: SCHIZOPHRENIA
     Route: 048
     Dates: start: 20010701
  3. FYBOGEL [Concomitant]
  4. MEBEVERINE (MEBEVERINE) [Concomitant]
  5. MICRONOR (NORETHISTERONE) [Concomitant]
  6. OXYBUTYNIN (OXYBUTYNIN) [Concomitant]

REACTIONS (4)
  - Blood alkaline phosphatase increased [None]
  - Alanine aminotransferase increased [None]
  - Haemoglobin decreased [None]
  - Liver function test abnormal [None]
